FAERS Safety Report 23733865 (Version 1)
Quarter: 2024Q2

REPORT INFORMATION
  Report Type: Report from Study
  Country: GB (occurrence: GB)
  Receive Date: 20240412
  Receipt Date: 20240412
  Transmission Date: 20240715
  Serious: Yes (Life-Threatening, Hospitalization, Disabling, Other)
  Sender: FDA-Public Use
  Company Number: None

PATIENT

DRUGS (1)
  1. ADALIMUMAB [Suspect]
     Active Substance: ADALIMUMAB\ISOPROPYL ALCOHOL
     Indication: Psoriasis
     Dosage: 40MG EVERY FORTNIGHT; ;
     Route: 048
     Dates: start: 20231121, end: 20240315

REACTIONS (1)
  - Dilated cardiomyopathy [Not Recovered/Not Resolved]
